FAERS Safety Report 6707837-4 (Version None)
Quarter: 2010Q2

REPORT INFORMATION
  Report Type: 
  Country: None (occurrence: None)
  Receive Date: 20100503
  Receipt Date: 20091027
  Transmission Date: 20101027
  Serious: No
  Sender: FDA-Public Use
  Company Number: US-ASTRAZENECA-2009SE22903

PATIENT
  Age: 55 Year
  Sex: Male

DRUGS (2)
  1. NEXIUM [Suspect]
     Route: 048
     Dates: start: 20040101
  2. PRILOSEC DELAYED ORAL SUSPENSION [Suspect]
     Route: 048

REACTIONS (5)
  - AMYLOIDOSIS [None]
  - DRUG INEFFECTIVE [None]
  - ELECTROLYTE IMBALANCE [None]
  - PAIN [None]
  - STENT PLACEMENT [None]
